FAERS Safety Report 25063821 (Version 1)
Quarter: 2025Q1

REPORT INFORMATION
  Report Type: Spontaneous
  Country: US (occurrence: None)
  Receive Date: 20250311
  Receipt Date: 20250311
  Transmission Date: 20250408
  Serious: No
  Sender: FDA-CTU
  Company Number: None

PATIENT
  Age: 54 Year
  Sex: Male
  Weight: 90.9 kg

DRUGS (1)
  1. REPATHA [Suspect]
     Active Substance: EVOLOCUMAB
     Indication: Blood cholesterol abnormal
     Dates: start: 20250101, end: 20250228

REACTIONS (11)
  - Gait inability [None]
  - Bedridden [None]
  - Muscular weakness [None]
  - Myalgia [None]
  - Joint swelling [None]
  - Musculoskeletal stiffness [None]
  - Tremor [None]
  - Gastroenteritis [None]
  - Respiratory distress [None]
  - Respiratory tract oedema [None]
  - Rash [None]

NARRATIVE: CASE EVENT DATE: 20250224
